FAERS Safety Report 12697395 (Version 1)
Quarter: 2016Q3

REPORT INFORMATION
  Report Type: Spontaneous
  Country: US (occurrence: US)
  Receive Date: 20160830
  Receipt Date: 20160830
  Transmission Date: 20161109
  Serious: No
  Sender: FDA-Public Use
  Company Number: US-PFIZER INC-2016397064

PATIENT
  Age: 16 Year
  Sex: Male

DRUGS (1)
  1. GENOTROPIN [Suspect]
     Active Substance: SOMATROPIN
     Indication: HYPOPITUITARISM
     Dosage: 2.1 MG, 1X/DAY (ALTERNATE 2.0 AND 2.2 Q.O.D)
     Route: 058
     Dates: start: 20151208

REACTIONS (1)
  - Headache [Recovered/Resolved]
